FAERS Safety Report 6526542-0 (Version None)
Quarter: 2010Q1

REPORT INFORMATION
  Report Type: 
  Country: None (occurrence: None)
  Receive Date: 20100105
  Receipt Date: 20091016
  Transmission Date: 20100710
  Serious: No
  Sender: FDA-Public Use
  Company Number: US-BAYER-200936331NA

PATIENT
  Age: 56 Year
  Sex: Female

DRUGS (7)
  1. ULTRAVIST (PHARMACY BULK) [Suspect]
     Indication: COMPUTERISED TOMOGRAM ABDOMEN
     Dosage: TOTAL DAILY DOSE: 50 ML
     Route: 042
     Dates: start: 20090613, end: 20090613
  2. ORAL CONTAST [Concomitant]
  3. ASPIRIN [Concomitant]
  4. PLAVIX [Concomitant]
  5. LIPITOR [Concomitant]
  6. ACCUPRIL [Concomitant]
  7. HYDROCHLOROTHIAZIDE [Concomitant]

REACTIONS (3)
  - LACRIMATION INCREASED [None]
  - NASAL CONGESTION [None]
  - SNEEZING [None]
